FAERS Safety Report 5220598-3 (Version None)
Quarter: 2007Q1

REPORT INFORMATION
  Report Type: 
  Country: None (occurrence: None)
  Receive Date: 20070126
  Receipt Date: 20070117
  Transmission Date: 20070707
  Serious: Yes (Other)
  Sender: FDA-Public Use
  Company Number: 2007UW00933

PATIENT
  Age: 55 Year
  Sex: Female
  Weight: 59.9 kg

DRUGS (13)
  1. NEXIUM [Suspect]
     Indication: GASTROOESOPHAGEAL REFLUX DISEASE
     Route: 048
  2. NEXIUM [Suspect]
     Indication: EROSIVE OESOPHAGITIS
     Route: 048
  3. DAYPRO [Concomitant]
     Indication: ARTHRITIS
  4. PREDNISONE TAB [Concomitant]
  5. ATENOLOL [Concomitant]
     Route: 048
  6. PROCARDIA [Concomitant]
  7. CRESTOR [Concomitant]
     Route: 048
  8. FOSOMAX [Concomitant]
  9. VITAMIN CAP [Concomitant]
  10. CALCIUM [Concomitant]
  11. ASCORBIC ACID [Concomitant]
  12. VITAMIN E [Concomitant]
  13. SYNTHROID [Concomitant]

REACTIONS (1)
  - FEMUR FRACTURE [None]
